FAERS Safety Report 22317581 (Version 1)
Quarter: 2023Q2

REPORT INFORMATION
  Report Type: Spontaneous
  Country: ES (occurrence: ES)
  Receive Date: 20230515
  Receipt Date: 20230515
  Transmission Date: 20230721
  Serious: Yes (Hospitalization, Other)
  Sender: FDA-Public Use
  Company Number: None

PATIENT
  Age: 50 Year
  Sex: Male
  Weight: 108 kg

DRUGS (12)
  1. PREDNISONE [Suspect]
     Active Substance: PREDNISONE
     Indication: Peripheral T-cell lymphoma unspecified stage IV
     Dosage: 6 CYCLES
  2. VINCRISTINE [Suspect]
     Active Substance: VINCRISTINE
     Indication: Peripheral T-cell lymphoma unspecified stage IV
     Dosage: 6 CYCLES
  3. CYCLOPHOSPHAMIDE [Suspect]
     Active Substance: CYCLOPHOSPHAMIDE
     Indication: Peripheral T-cell lymphoma unspecified stage IV
     Dosage: 6 CYCLES
  4. DOXORUBICIN [Suspect]
     Active Substance: DOXORUBICIN
     Indication: Peripheral T-cell lymphoma unspecified stage IV
     Dosage: 6 CYCLES
  5. HYDROCORTISONE [Suspect]
     Active Substance: HYDROCORTISONE
     Indication: Peripheral T-cell lymphoma unspecified stage IV
     Dosage: UNK  UNK
     Route: 037
  6. CYTARABINE [Suspect]
     Active Substance: CYTARABINE
     Indication: Peripheral T-cell lymphoma unspecified stage IV
     Dosage: UNK ,UNK
     Route: 037
  7. CYTARABINE [Suspect]
     Active Substance: CYTARABINE
     Indication: Bone marrow conditioning regimen
     Dosage: 424 MG
     Dates: start: 202002, end: 2020
  8. ETOPOSIDE [Suspect]
     Active Substance: ETOPOSIDE
     Indication: Bone marrow conditioning regimen
     Dosage: 212 MG
     Dates: start: 202002, end: 2020
  9. ETOPOSIDE [Suspect]
     Active Substance: ETOPOSIDE
     Indication: Peripheral T-cell lymphoma unspecified stage IV
     Dosage: 6 CYCLES
  10. CARMUSTINE [Suspect]
     Active Substance: CARMUSTINE
     Indication: Bone marrow conditioning regimen
     Dosage: 636 MG + 570 MG SAME DAY
     Dates: start: 202002
  11. MELPHALAN [Suspect]
     Active Substance: MELPHALAN
     Indication: Bone marrow conditioning regimen
     Dosage: 296 MG
     Dates: start: 202002, end: 2020
  12. METHOTREXATE [Suspect]
     Active Substance: METHOTREXATE
     Indication: Peripheral T-cell lymphoma unspecified stage IV
     Dosage: UNK ,UNK
     Route: 037

REACTIONS (3)
  - Lung infiltration [Recovered/Resolved]
  - Organising pneumonia [Recovered/Resolved]
  - Respiratory failure [Recovered/Resolved]

NARRATIVE: CASE EVENT DATE: 20200901
